FAERS Safety Report 13330447 (Version 1)
Quarter: 2017Q1

REPORT INFORMATION
  Report Type: Report from Study
  Country: US (occurrence: US)
  Receive Date: 20170313
  Receipt Date: 20170313
  Transmission Date: 20170428
  Serious: No
  Sender: FDA-Public Use
  Company Number: GXBR2017US000902

PATIENT
  Sex: Male
  Weight: 17.24 kg

DRUGS (1)
  1. OMNITROPE [Suspect]
     Active Substance: SOMATROPIN
     Indication: SMALL FOR DATES BABY
     Dosage: 0.7 MG, QD
     Route: 065
     Dates: start: 201607

REACTIONS (1)
  - Injection site discomfort [Not Recovered/Not Resolved]
